FAERS Safety Report 19860933 (Version 1)
Quarter: 2021Q3

REPORT INFORMATION
  Report Type: Spontaneous
  Country: JP (occurrence: JP)
  Receive Date: 20210920
  Receipt Date: 20210920
  Transmission Date: 20211014
  Serious: Yes (Other)
  Sender: FDA-Public Use
  Company Number: JP-PFIZER INC-202101172419

PATIENT
  Sex: Male

DRUGS (1)
  1. METHOTREXATE SODIUM. [Suspect]
     Active Substance: METHOTREXATE SODIUM
     Dosage: 2 MG FOR 5 CONSECUTIVE MONTHS

REACTIONS (4)
  - Myelosuppression [Unknown]
  - Sepsis [Unknown]
  - Accidental overdose [Unknown]
  - Disseminated intravascular coagulation [Unknown]
